FAERS Safety Report 9282486 (Version 2)
Quarter: 2014Q1

REPORT INFORMATION
  Report Type: Spontaneous
  Country: US (occurrence: US)
  Receive Date: 20130510
  Receipt Date: 20140124
  Transmission Date: 20141002
  Serious: No
  Sender: FDA-Public Use
  Company Number: US-PFIZER INC-2013143306

PATIENT
  Age: 56 Year
  Sex: Female

DRUGS (18)
  1. ENBREL [Suspect]
     Indication: RHEUMATOID ARTHRITIS
     Dosage: UNK
  2. HCQ [Suspect]
     Dosage: UNK
  3. HYDROXYCHLOROQUINE SULFATE [Suspect]
     Dosage: 200 MG, BID
     Route: 048
  4. REMICADE [Suspect]
     Dosage: UNK
  5. HUMIRA [Suspect]
     Dosage: UNK
  6. PRILOSEC [Concomitant]
     Dosage: 40 MG, QD
     Route: 048
  7. CLOTRIMAZOLE AND BETAMETHASONE [Concomitant]
     Dosage: 1-0.05 %, EXTERNAL LOTION
  8. OXYCODONE / ACETAMINOPHEN [Concomitant]
     Dosage: 5-325 MG
     Route: 048
  9. GLUCOSAMINE [Concomitant]
     Dosage: 1500 MG, QD
  10. ESTRADIOL [Concomitant]
     Dosage: 0.5 MG, QD
     Route: 048
  11. CHONDROITIN [Concomitant]
     Dosage: 1250 MG, QD
  12. METOPROLOL TARTRATE [Concomitant]
     Dosage: 25 MG, BID
     Route: 048
  13. MULTIVITAMIN [Concomitant]
     Dosage: UNK
  14. VITAMIN D3 [Concomitant]
     Dosage: 2000 UNIT, UNK
     Route: 048
  15. ACIDOPHILUS/PECTIN [Concomitant]
     Dosage: UNK
     Route: 048
  16. FOLIC ACID [Concomitant]
     Dosage: 1 MG, QD
     Route: 048
  17. LEUCOVORIN CALCIUM [Concomitant]
     Dosage: 5 MG, QWK, TAKE ONE TABLET WEEKLY ONE DAY AFTER METHOTREXATE
     Route: 048
  18. CELEBREX [Concomitant]
     Dosage: UNK

REACTIONS (2)
  - Drug ineffective [Unknown]
  - Drug effect incomplete [Unknown]
